FAERS Safety Report 21279504 (Version 1)
Quarter: 2022Q3

REPORT INFORMATION
  Report Type: Spontaneous
  Country: CA (occurrence: None)
  Receive Date: 20220901
  Receipt Date: 20220901
  Transmission Date: 20221027
  Serious: Yes (Other)
  Sender: FDA-Public Use
  Company Number: CA-ROCHE-3167805

PATIENT
  Age: 42 Year
  Sex: Female

DRUGS (2)
  1. MYCOPHENOLATE MOFETIL [Suspect]
     Active Substance: MYCOPHENOLATE MOFETIL
     Indication: Takayasu^s arteritis
     Route: 065
  2. ABRILADA [Suspect]
     Active Substance: ADALIMUMAB-AFZB
     Indication: Takayasu^s arteritis
     Dosage: EVERY 2 WEEKS
     Route: 058

REACTIONS (3)
  - Colitis [Unknown]
  - Nausea [Unknown]
  - Off label use [Unknown]
